FAERS Safety Report 12068813 (Version 2)
Quarter: 2016Q1

REPORT INFORMATION
  Report Type: Report from Study
  Country: NZ (occurrence: NZ)
  Receive Date: 20160211
  Receipt Date: 20160310
  Transmission Date: 20160526
  Serious: Yes (Hospitalization, Other)
  Sender: FDA-Public Use
  Company Number: NZ-BRISTOL-MYERS SQUIBB COMPANY-BMS-2016-007634

PATIENT
  Sex: Male

DRUGS (2)
  1. NIVOLUMAB [Suspect]
     Active Substance: NIVOLUMAB
     Indication: RENAL CELL CARCINOMA
     Dosage: 255 MG, Q2WK
     Route: 065
     Dates: start: 20160121
  2. AUGMENTIN [Concomitant]
     Active Substance: AMOXICILLIN\CLAVULANATE POTASSIUM
     Indication: PRODUCT USED FOR UNKNOWN INDICATION
     Dosage: 1.25 G, Q8H
     Route: 065

REACTIONS (3)
  - Lower respiratory tract infection [Recovered/Resolved]
  - Cholecystitis [Recovered/Resolved]
  - Gallbladder abscess [Recovered/Resolved]

NARRATIVE: CASE EVENT DATE: 201602
